FAERS Safety Report 23480328 (Version 1)
Quarter: 2024Q1

REPORT INFORMATION
  Report Type: Spontaneous
  Country: DE (occurrence: DE)
  Receive Date: 20240205
  Receipt Date: 20240205
  Transmission Date: 20240409
  Serious: No
  Sender: FDA-Public Use
  Company Number: None

PATIENT
  Age: 61 Year
  Sex: Female
  Weight: 112 kg

DRUGS (4)
  1. ROSUVASTATIN [Suspect]
     Active Substance: ROSUVASTATIN
     Indication: Coronary artery disease
     Dosage: 5 MILLIGRAM, ONCE WEEKLY
     Route: 048
  2. EZETIMIBE [Suspect]
     Active Substance: EZETIMIBE
     Indication: Coronary artery disease
     Dosage: 10 MILLIGRAM
     Route: 048
  3. FLUVASTATIN [Suspect]
     Active Substance: FLUVASTATIN SODIUM
     Indication: Coronary artery disease
     Dosage: 20 MILLIGRAM
     Route: 048
  4. PRAVASTATIN [Suspect]
     Active Substance: PRAVASTATIN
     Indication: Coronary artery disease
     Dosage: 10 MILLIGRAM, ONCE IN 2 WEEKS
     Route: 048

REACTIONS (3)
  - Muscle spasms [Recovered/Resolved]
  - Myalgia [Recovered/Resolved]
  - Nausea [Recovered/Resolved]
